FAERS Safety Report 8349811-0 (Version None)
Quarter: 2012Q1

REPORT INFORMATION
  Report Type: 
  Country: None (occurrence: None)
  Receive Date: 20120329
  Receipt Date: 20110203
  Transmission Date: 20120608
  Serious: Yes (Other)
  Sender: FDA-Public Use
  Company Number: WAES 1102USA00553

PATIENT

DRUGS (1)
  1. FOSAPREPITANT DIMEGLAMINE [Suspect]
     Indication: PROPHYLAXIS
     Dosage: 150 MG/1X/IV
     Route: 042

REACTIONS (1)
  - STEVENS-JOHNSON SYNDROME [None]
